FAERS Safety Report 8881200 (Version 1)
Quarter: 2012Q4

REPORT INFORMATION
  Report Type: 
  Country: US (occurrence: US)
  Receive Date: 20121031
  Receipt Date: 20121031
  Transmission Date: 20130627
  Serious: Yes (Other)
  Sender: FDA-Public Use
  Company Number: US-ROCHE-1146512

PATIENT
  Sex: Female

DRUGS (23)
  1. LUCENTIS [Suspect]
     Indication: AGE-RELATED MACULAR DEGENERATION
     Route: 065
  2. FISH OIL CONCENTRATE [Concomitant]
     Route: 065
  3. SYNTHROID [Concomitant]
     Route: 065
     Dates: start: 20120831
  4. OXYTROL [Concomitant]
     Route: 065
  5. INDAPAMIDE [Concomitant]
     Route: 065
  6. BABY ASPIRIN [Concomitant]
     Route: 065
  7. SIMVASTATIN [Concomitant]
     Route: 065
  8. OMEPRAZOLE [Concomitant]
     Route: 065
  9. METANX [Concomitant]
     Dosage: 2.8-25-2 mg
     Route: 065
  10. METANX [Concomitant]
     Dosage: 3-35-2 mg
     Route: 065
  11. ARICEPT [Concomitant]
     Route: 065
  12. IMIPRAMINE HCL [Concomitant]
     Route: 065
  13. METOPROLOL TARTRATE [Concomitant]
     Route: 065
  14. LOSARTAN POTASSIUM [Concomitant]
     Route: 065
  15. SINGULAIR [Concomitant]
     Route: 065
  16. VESICARE [Concomitant]
     Route: 065
  17. OXYBUTYNIN CHLORIDE [Concomitant]
     Route: 065
  18. CLONIDINE HCL [Concomitant]
     Route: 065
  19. TOVIAZ [Concomitant]
     Route: 065
  20. POTASSIUM CHLORIDE, CONTROLLED RELEASE [Concomitant]
     Route: 065
  21. MELATONIN [Concomitant]
     Route: 065
  22. CALTRATE WITH VITAMIN D [Concomitant]
     Dosage: 600-125
     Route: 065
  23. BESIVANCE [Concomitant]
     Dosage: 1 drop
     Route: 065

REACTIONS (2)
  - Blindness [Recovered/Resolved]
  - Pain [Unknown]
